FAERS Safety Report 6117191-7 (Version None)
Quarter: 2009Q1

REPORT INFORMATION
  Report Type: 
  Country: None (occurrence: None)
  Receive Date: 20090314
  Receipt Date: 20090107
  Transmission Date: 20090719
  Serious: No
  Sender: FDA-Public Use
  Company Number: US-ABBOTT-09P-163-0496095-00

PATIENT
  Sex: Male
  Weight: 78.996 kg

DRUGS (5)
  1. HUMIRA [Suspect]
     Indication: COLITIS ULCERATIVE
     Dates: start: 20080301, end: 20080701
  2. HUMIRA [Suspect]
     Dates: start: 20080701
  3. SIMVASTATIN [Concomitant]
     Indication: BLOOD CHOLESTEROL INCREASED
  4. LIALDA [Concomitant]
     Indication: COLITIS ULCERATIVE
  5. METHOTREXATE [Concomitant]
     Indication: COLITIS ULCERATIVE

REACTIONS (3)
  - COLITIS ULCERATIVE [None]
  - INJECTION SITE PAIN [None]
  - WEIGHT DECREASED [None]
